FAERS Safety Report 8387432-4 (Version None)
Quarter: 2012Q2

REPORT INFORMATION
  Report Type: 
  Country: None (occurrence: None)
  Receive Date: 20120525
  Receipt Date: 20120517
  Transmission Date: 20120825
  Serious: Yes (Hospitalization)
  Sender: FDA-Public Use
  Company Number: US-NOVOPROD-352058

PATIENT
  Age: 66 Year
  Sex: Male

DRUGS (6)
  1. REVLIMID [Suspect]
     Indication: MULTIPLE MYELOMA
     Dosage: 25 MG, QD X 21 DAYS EVERY 28 DAYS
     Route: 048
     Dates: start: 20050908
  2. REVLIMID [Suspect]
     Dosage: 25 MG, QD X 21 DAYS EVERY 28 DAYS
     Route: 048
     Dates: start: 20120109
  3. RAMIPRIL [Concomitant]
     Indication: PRODUCT USED FOR UNKNOWN INDICATION
  4. NOVOLOG [Suspect]
     Indication: TYPE 1 DIABETES MELLITUS
     Dosage: UNKNOWN
     Route: 058
  5. DEXAMETHASONE [Suspect]
     Indication: MULTIPLE MYELOMA
     Dosage: 40 MG ON DAYS 1, 8, 15, 22 EVERY 28 DAYS
     Route: 048
     Dates: start: 20050908, end: 20080306
  6. SIMVASTATIN [Concomitant]
     Indication: PRODUCT USED FOR UNKNOWN INDICATION

REACTIONS (5)
  - CONFUSIONAL STATE [None]
  - HYPERGLYCAEMIA [None]
  - VOMITING [None]
  - HYPERKALAEMIA [None]
  - VENTRICULAR TACHYCARDIA [None]
